FAERS Safety Report 12439076 (Version 1)
Quarter: 2016Q2

REPORT INFORMATION
  Report Type: Spontaneous
  Country: IL (occurrence: IL)
  Receive Date: 20160606
  Receipt Date: 20160606
  Transmission Date: 20160815
  Serious: Yes (Hospitalization, Other)
  Sender: FDA-Public Use
  Company Number: IL-SHIRE-IL201606636

PATIENT
  Age: 15 Year
  Sex: Male

DRUGS (1)
  1. ELAPRASE [Suspect]
     Active Substance: IDURSULFASE
     Indication: PRODUCT USED FOR UNKNOWN INDICATION
     Dosage: 18 MG, 1X/WEEK
     Route: 041

REACTIONS (2)
  - Apnoea [Unknown]
  - Respiratory distress [Unknown]

NARRATIVE: CASE EVENT DATE: 201605
